FAERS Safety Report 5377845-7 (Version None)
Quarter: 2007Q3

REPORT INFORMATION
  Report Type: 
  Country: None (occurrence: None)
  Receive Date: 20070703
  Receipt Date: 20070625
  Transmission Date: 20080115
  Serious: Yes (Other)
  Sender: FDA-Public Use
  Company Number: US-PFIZER INC-2007053024

PATIENT
  Sex: Female
  Weight: 84.1 kg

DRUGS (7)
  1. XALATAN [Suspect]
     Indication: GLAUCOMA
     Dates: start: 20030101, end: 20070520
  2. COMBIVENT [Concomitant]
  3. XOPENEX [Concomitant]
  4. MOMETASONE FUROATE [Concomitant]
  5. CELEXA [Concomitant]
  6. ACETYLSALICYLIC ACID SRT [Concomitant]
  7. MULTIVITAMIN [Concomitant]

REACTIONS (2)
  - EYE DISORDER [None]
  - EYE PAIN [None]
